FAERS Safety Report 5967873-2 (Version None)
Quarter: 2008Q4

REPORT INFORMATION
  Report Type: 
  Country: None (occurrence: None)
  Receive Date: 20081126
  Receipt Date: 20081120
  Transmission Date: 20090506
  Serious: Yes (Life-Threatening)
  Sender: FDA-Public Use
  Company Number: JP-SANOFI-SYNTHELABO-F01200801757

PATIENT
  Sex: Female
  Weight: 76 kg

DRUGS (23)
  1. FLUITRAN [Concomitant]
     Route: 048
     Dates: start: 20080924
  2. AMARYL [Concomitant]
     Route: 048
     Dates: start: 20080730, end: 20080819
  3. AMARYL [Concomitant]
     Route: 048
     Dates: start: 20080820
  4. SENNOSIDE [Concomitant]
     Route: 048
     Dates: start: 20080702
  5. LENDORM [Concomitant]
     Route: 048
     Dates: start: 20080702
  6. FAMOTIDINE [Concomitant]
     Route: 048
     Dates: start: 20080702
  7. GLYCINE 1.5% [Concomitant]
     Route: 048
     Dates: start: 20080702
  8. SIGMART [Concomitant]
     Route: 048
     Dates: start: 20080529, end: 20080819
  9. SIGMART [Concomitant]
     Route: 048
     Dates: start: 20080819, end: 20081014
  10. SIGMART [Concomitant]
     Route: 048
     Dates: start: 20081015
  11. ACTOS [Concomitant]
     Route: 048
     Dates: start: 20080529, end: 20080701
  12. OMEPRAL [Concomitant]
     Route: 048
     Dates: start: 20080528, end: 20080701
  13. PITAVASTATIN CALCIUM [Concomitant]
     Route: 048
     Dates: start: 20080528
  14. HEPARIN [Concomitant]
     Route: 042
     Dates: start: 20080528, end: 20080528
  15. HEPARIN [Concomitant]
     Route: 042
     Dates: start: 20080528, end: 20080529
  16. ASPIRIN [Concomitant]
     Dosage: 100 MG
     Route: 048
     Dates: start: 20080528
  17. CLOPIDOGREL [Suspect]
     Indication: ACUTE CORONARY SYNDROME
     Dosage: STARTING DOSE 300 MG
     Route: 048
     Dates: start: 20080528, end: 20080528
  18. CLOPIDOGREL [Suspect]
     Indication: ACUTE MYOCARDIAL INFARCTION
     Dosage: STARTING DOSE 300 MG
     Route: 048
     Dates: start: 20080528, end: 20080528
  19. CLOPIDOGREL [Suspect]
     Dosage: MAINTENANCE DOSE
     Route: 048
     Dates: start: 20080528
  20. CLOPIDOGREL [Suspect]
     Dosage: MAINTENANCE DOSE
     Route: 048
     Dates: start: 20080528
  21. ADALAT CC [Concomitant]
     Route: 048
     Dates: start: 20080702
  22. DIOVAN [Concomitant]
     Route: 048
     Dates: start: 20080528, end: 20080819
  23. DIOVAN [Concomitant]
     Route: 048
     Dates: start: 20080820

REACTIONS (1)
  - VASCULAR PSEUDOANEURYSM RUPTURED [None]
